FAERS Safety Report 22352826 (Version 3)
Quarter: 2023Q2

REPORT INFORMATION
  Report Type: Report from Study
  Country: DE (occurrence: DE)
  Receive Date: 20230523
  Receipt Date: 20230609
  Transmission Date: 20230721
  Serious: Yes (Death, Other)
  Sender: FDA-Public Use
  Company Number: DE-ABBVIE-5174127

PATIENT
  Age: 68 Year
  Sex: Male

DRUGS (2)
  1. CARBIDOPA\LEVODOPA [Suspect]
     Active Substance: CARBIDOPA\LEVODOPA
     Indication: Parkinson^s disease
     Dosage: MD: 3.0ML; CRD: 1.2ML/H; CRN: 1.2ML/H; ED: 1.0ML
     Dates: start: 20221229, end: 20230519
  2. CARBIDOPA\LEVODOPA [Suspect]
     Active Substance: CARBIDOPA\LEVODOPA
     Dosage: MD: 3.0ML; CRD: 1.2ML/H; CRN: 1.2ML/H; ED: 1.0ML
     Route: 050
     Dates: start: 20221229

REACTIONS (4)
  - Death [Fatal]
  - Palliative care [Not Recovered/Not Resolved]
  - Choking [Recovered/Resolved]
  - Dysphagia [Not Recovered/Not Resolved]

NARRATIVE: CASE EVENT DATE: 20230501
